FAERS Safety Report 4567423-1 (Version None)
Quarter: 2005Q1

REPORT INFORMATION
  Report Type: 
  Country: None (occurrence: None)
  Receive Date: 20050127
  Receipt Date: 20041221
  Transmission Date: 20050727
  Serious: Yes (Death)
  Sender: FDA-Public Use
  Company Number: 20040062USST

PATIENT
  Age: 22 Year
  Sex: Male

DRUGS (9)
  1. PROCARBAZINE HYDROCHLORIDE [Suspect]
     Indication: HODGKIN'S DISEASE
     Dosage: 100 MG/SQ. METER, PO
     Route: 048
     Dates: end: 20041108
  2. CIPROBAY (CIPROFLOXACINE) [Suspect]
     Dosage: 2 X 750 MG
     Dates: start: 20041109, end: 20041116
  3. NEXIUM [Concomitant]
  4. AMPHOMORONAL [Concomitant]
  5. NEUPOGEN [Concomitant]
  6. CIPROFLOXACIN HCL [Concomitant]
  7. METOCLOPRAMIDE HYDROCHLORIDE [Concomitant]
  8. DECORTIN [Concomitant]
  9. ALLOPURINOL [Concomitant]

REACTIONS (1)
  - COMPLETED SUICIDE [None]
